FAERS Safety Report 17685518 (Version 1)
Quarter: 2020Q2

REPORT INFORMATION
  Report Type: Spontaneous
  Country: US (occurrence: US)
  Receive Date: 20200420
  Receipt Date: 20200420
  Transmission Date: 20200714
  Serious: Yes (Other)
  Sender: FDA-Public Use
  Company Number: None

PATIENT
  Age: 63 Year
  Sex: Female
  Weight: 102.6 kg

DRUGS (7)
  1. GABAPENTIN. [Concomitant]
     Active Substance: GABAPENTIN
  2. MELOXICAM. [Concomitant]
     Active Substance: MELOXICAM
  3. BIOTIN [Concomitant]
     Active Substance: BIOTIN
  4. PREDNISONE. [Concomitant]
     Active Substance: PREDNISONE
  5. LORTAB [Concomitant]
     Active Substance: ACETAMINOPHEN\HYDROCODONE BITARTRATE
  6. CIPROFLOXACIN. [Concomitant]
     Active Substance: CIPROFLOXACIN
  7. NEOMYCIN AND POLYMYXIN B SULFATES AND HYDROCORTISONE [Suspect]
     Active Substance: HYDROCORTISONE\NEOMYCIN SULFATE\POLYMYXIN B SULFATE
     Indication: EAR INFECTION
     Dosage: ?          QUANTITY:3 DROP(S);?
     Route: 001
     Dates: start: 20200404, end: 20200405

REACTIONS (8)
  - Skin texture abnormal [None]
  - Ear pain [None]
  - Instillation site reaction [None]
  - Ear pruritus [None]
  - Skin exfoliation [None]
  - Erythema [None]
  - Pruritus [None]
  - Scab [None]

NARRATIVE: CASE EVENT DATE: 20200405
